FAERS Safety Report 23993896 (Version 1)
Quarter: 2024Q2

REPORT INFORMATION
  Report Type: Report from Study
  Country: US (occurrence: US)
  Receive Date: 20240620
  Receipt Date: 20240620
  Transmission Date: 20240716
  Serious: Yes (Other)
  Sender: FDA-Public Use
  Company Number: US-ASTELLAS-2024EU005950

PATIENT
  Age: 50 Year
  Sex: Male

DRUGS (3)
  1. TACROLIMUS [Suspect]
     Active Substance: TACROLIMUS
     Indication: Renal transplant
     Dosage: UNK UNK, UNKNOWN FREQ.
     Route: 065
  2. GLECAPREVIR [Concomitant]
     Active Substance: GLECAPREVIR
     Indication: Product use in unapproved indication
     Dosage: UNK UNK, UNKNOWN FREQ.
     Route: 065
  3. PIBRENTASVIR [Concomitant]
     Active Substance: PIBRENTASVIR
     Indication: Product used for unknown indication
     Dosage: UNK UNK, UNKNOWN FREQ.
     Route: 065

REACTIONS (2)
  - Toxicity to various agents [Unknown]
  - Thrombotic microangiopathy [Unknown]
